FAERS Safety Report 20592069 (Version 1)
Quarter: 2022Q1

REPORT INFORMATION
  Report Type: Spontaneous
  Country: None (occurrence: US)
  Receive Date: 20220314
  Receipt Date: 20220314
  Transmission Date: 20220423
  Serious: No
  Sender: FDA-Public Use
  Company Number: US-Intersect Ent, Inc.-2126774

PATIENT
  Age: 60 Year
  Sex: Male

DRUGS (1)
  1. SINUVA [Suspect]
     Active Substance: MOMETASONE FUROATE
     Indication: Nasal polyps
     Route: 006
     Dates: start: 20210927

REACTIONS (4)
  - Otitis media chronic [Not Recovered/Not Resolved]
  - Anosmia [Not Recovered/Not Resolved]
  - Nasal crusting [Not Recovered/Not Resolved]
  - Conductive deafness [Not Recovered/Not Resolved]

NARRATIVE: CASE EVENT DATE: 20211213
